FAERS Safety Report 21038801 (Version 3)
Quarter: 2022Q4

REPORT INFORMATION
  Report Type: Spontaneous
  Country: US (occurrence: US)
  Receive Date: 20220704
  Receipt Date: 20221222
  Transmission Date: 20230112
  Serious: Yes (Other)
  Sender: FDA-Public Use
  Company Number: US-BRISTOL-MYERS SQUIBB COMPANY-2022-068006

PATIENT
  Age: 22 Year
  Sex: Female

DRUGS (2)
  1. ORENCIA [Suspect]
     Active Substance: ABATACEPT
     Indication: Product used for unknown indication
     Dosage: STRENGTH 125MG/ML
     Route: 058
  2. IRON [Suspect]
     Active Substance: IRON
     Indication: Product used for unknown indication
     Dates: start: 202206

REACTIONS (4)
  - Adverse event [Unknown]
  - Body temperature decreased [Unknown]
  - Swelling [Unknown]
  - Dyspnoea [Unknown]
